FAERS Safety Report 12856760 (Version 1)
Quarter: 2016Q4

REPORT INFORMATION
  Report Type: Spontaneous
  Country: US (occurrence: US)
  Receive Date: 20161017
  Receipt Date: 20161017
  Transmission Date: 20170207
  Serious: Yes (Death)
  Sender: FDA-Public Use
  Company Number: None

PATIENT
  Age: 74 Year
  Sex: Male
  Weight: 98.1 kg

DRUGS (1)
  1. HALDOL [Suspect]
     Active Substance: HALOPERIDOL

REACTIONS (4)
  - Contraindicated product administered [None]
  - Confusional state [None]
  - Cardiac arrest [None]
  - Myocardial ischaemia [None]

NARRATIVE: CASE EVENT DATE: 20160709
